FAERS Safety Report 20649662 (Version 4)
Quarter: 2022Q2

REPORT INFORMATION
  Report Type: Spontaneous
  Country: JP (occurrence: JP)
  Receive Date: 20220329
  Receipt Date: 20220609
  Transmission Date: 20220721
  Serious: Yes (Death, Hospitalization, Other)
  Sender: FDA-Public Use
  Company Number: JP-MSD-M2022-06126

PATIENT
  Age: 82 Year
  Sex: Female

DRUGS (7)
  1. KEYTRUDA [Suspect]
     Active Substance: PEMBROLIZUMAB
     Indication: Uterine cancer
     Dosage: 200 MILLIGRAM, Q3W
     Route: 041
     Dates: start: 20220208, end: 202203
  2. KEYTRUDA [Suspect]
     Active Substance: PEMBROLIZUMAB
     Dosage: 200 MILLIGRAM, Q3W
     Route: 041
     Dates: start: 20220422, end: 20220422
  3. LENVIMA [Suspect]
     Active Substance: LENVATINIB
     Indication: Uterine cancer
     Dosage: 20 MILLIGRAM, QD
     Route: 048
     Dates: start: 20220208, end: 20220221
  4. LENVIMA [Suspect]
     Active Substance: LENVATINIB
     Dosage: 20 MILLIGRAM, QD
     Route: 048
     Dates: start: 20220301, end: 20220307
  5. LENVIMA [Suspect]
     Active Substance: LENVATINIB
     Dosage: 14 MILLIGRAM, QD
     Route: 048
     Dates: start: 20220422, end: 20220509
  6. ADALAT [Concomitant]
     Active Substance: NIFEDIPINE
     Indication: Hypertension
     Dosage: 10 MILLIGRAM
     Route: 065
  7. ADALAT [Concomitant]
     Active Substance: NIFEDIPINE
     Dosage: 20 MILLIGRAM
     Route: 065
     Dates: start: 20220301

REACTIONS (8)
  - Septic shock [Fatal]
  - Cellulitis [Unknown]
  - Pneumonia aspiration [Recovered/Resolved]
  - Eastern Cooperative Oncology Group performance status worsened [Unknown]
  - Malaise [Recovered/Resolved]
  - Hypertension [Recovering/Resolving]
  - Pyrexia [Not Recovered/Not Resolved]
  - Platelet count decreased [Not Recovered/Not Resolved]

NARRATIVE: CASE EVENT DATE: 20220101
